FAERS Safety Report 10214584 (Version 1)
Quarter: 2014Q2

REPORT INFORMATION
  Report Type: Spontaneous
  Country: US (occurrence: US)
  Receive Date: 20140603
  Receipt Date: 20140603
  Transmission Date: 20141212
  Serious: Yes (Hospitalization, Other)
  Sender: FDA-Public Use
  Company Number: US-JNJFOC-20140517460

PATIENT
  Age: 68 Year
  Sex: Female

DRUGS (21)
  1. REMICADE [Suspect]
     Indication: PSORIATIC ARTHROPATHY
     Route: 042
     Dates: end: 201307
  2. REMICADE [Suspect]
     Indication: PSORIATIC ARTHROPATHY
     Route: 042
     Dates: start: 201304, end: 2013
  3. REMICADE [Suspect]
     Indication: CROHN^S DISEASE
     Route: 042
     Dates: start: 201304, end: 2013
  4. REMICADE [Suspect]
     Indication: CROHN^S DISEASE
     Route: 042
     Dates: end: 201307
  5. HUMIRA [Suspect]
     Indication: CROHN^S DISEASE
     Route: 065
     Dates: end: 201112
  6. HUMIRA [Suspect]
     Indication: CROHN^S DISEASE
     Route: 065
     Dates: start: 20111209, end: 20111209
  7. HUMIRA [Suspect]
     Indication: CROHN^S DISEASE
     Route: 065
     Dates: start: 20111223, end: 20111223
  8. INDERAL [Concomitant]
     Indication: PRODUCT USED FOR UNKNOWN INDICATION
     Route: 065
  9. EDARBI [Concomitant]
     Indication: HYPERTENSION
     Route: 065
  10. SYNTHROID [Concomitant]
     Indication: HYPOTHYROIDISM
     Route: 065
  11. FOLIC ACID [Concomitant]
     Indication: PRODUCT USED FOR UNKNOWN INDICATION
     Route: 065
  12. VITAMIN D [Concomitant]
     Indication: PRODUCT USED FOR UNKNOWN INDICATION
     Route: 065
  13. NEXIUM [Concomitant]
     Indication: PRODUCT USED FOR UNKNOWN INDICATION
     Route: 065
  14. MELOXICAM [Concomitant]
     Indication: PRODUCT USED FOR UNKNOWN INDICATION
     Route: 065
  15. CRESTOR [Concomitant]
     Indication: BLOOD CHOLESTEROL INCREASED
     Route: 065
  16. STOOL SOFTENER [Concomitant]
     Indication: BLOOD CHOLESTEROL INCREASED
     Route: 065
  17. TRAMADOL [Concomitant]
     Indication: MYALGIA
     Route: 065
  18. PENTASA [Concomitant]
     Indication: PRODUCT USED FOR UNKNOWN INDICATION
     Route: 065
     Dates: start: 201305
  19. HYDRALAZINE [Concomitant]
     Indication: HYPERTENSION
     Route: 065
  20. ASPIRIN [Concomitant]
     Indication: PRODUCT USED FOR UNKNOWN INDICATION
     Route: 065
  21. ASPIRIN [Concomitant]
     Indication: PRODUCT USED FOR UNKNOWN INDICATION
     Route: 065

REACTIONS (21)
  - Humerus fracture [Recovered/Resolved]
  - Fall [Recovered/Resolved]
  - Abdominal distension [Recovered/Resolved]
  - Stress [Unknown]
  - Diarrhoea [Recovered/Resolved]
  - Chills [Recovered/Resolved]
  - Hypertension [Unknown]
  - Nausea [Recovered/Resolved]
  - Peripheral swelling [Recovered/Resolved]
  - Pain [Recovered/Resolved]
  - Drug ineffective [Unknown]
  - Muscular weakness [Recovered/Resolved]
  - Pleurisy [Recovered/Resolved]
  - Arthralgia [Unknown]
  - Constipation [Recovered/Resolved]
  - Anaemia [Unknown]
  - Haematochezia [Unknown]
  - Abdominal pain [Unknown]
  - Gastritis [Unknown]
  - Proctitis [Unknown]
  - Drug ineffective [Unknown]
